FAERS Safety Report 5337314-7 (Version None)
Quarter: 2007Q2

REPORT INFORMATION
  Report Type: 
  Country: None (occurrence: None)
  Receive Date: 20070529
  Receipt Date: 20070521
  Transmission Date: 20071010
  Serious: Yes (Hospitalization)
  Sender: FDA-Public Use
  Company Number: CH-PFIZER INC-2007040565

PATIENT
  Age: 87 Year
  Sex: Male

DRUGS (9)
  1. ALDACTONE [Suspect]
     Route: 048
  2. ATENOLOL [Suspect]
     Route: 048
  3. TORSEMIDE [Suspect]
     Route: 048
  4. RENITEN SUBMITE RPD [Suspect]
     Route: 048
  5. ASPIRIN [Concomitant]
     Dosage: DAILY DOSE:100MG-FREQ:DAILY
     Route: 048
  6. DIAMICRON MR [Concomitant]
     Dosage: TEXT:3 DF-FREQ:DAILY
     Route: 048
  7. KCL-ZYMA [Concomitant]
     Route: 048
  8. FOLVITE [Concomitant]
     Dosage: TEXT:1 DF
     Route: 048
  9. ARICEPT [Concomitant]
     Dosage: TEXT:1 DF
     Route: 048

REACTIONS (2)
  - DEHYDRATION [None]
  - HYPOTENSION [None]
